FAERS Safety Report 8832132 (Version 1)
Quarter: 2012Q4

REPORT INFORMATION
  Report Type: 
  Country: US (occurrence: US)
  Receive Date: 20121009
  Receipt Date: 20121009
  Transmission Date: 20130627
  Serious: Yes (Hospitalization)
  Sender: FDA-Public Use
  Company Number: US-ROCHE-1102662

PATIENT
  Age: 55 Year
  Sex: Female

DRUGS (3)
  1. PEGASYS [Suspect]
     Indication: HEPATITIS C
     Route: 058
     Dates: start: 20120701
  2. RIBAVIRIN [Suspect]
     Indication: HEPATITIS C
     Dosage: in divided doses by 400/600
     Route: 065
     Dates: start: 20120701
  3. TELAPREVIR [Suspect]
     Indication: HEPATITIS C
     Dosage: 2 tablets
     Route: 065
     Dates: start: 20120701

REACTIONS (14)
  - Urticaria [Not Recovered/Not Resolved]
  - Lip blister [Not Recovered/Not Resolved]
  - Rash erythematous [Not Recovered/Not Resolved]
  - Feeling abnormal [Not Recovered/Not Resolved]
  - Pruritus [Not Recovered/Not Resolved]
  - Swelling face [Unknown]
  - Rash generalised [Unknown]
  - Dry skin [Unknown]
  - Skin fissures [Unknown]
  - Haematochezia [Unknown]
  - Diarrhoea [Unknown]
  - Vomiting [Unknown]
  - Anaemia [Unknown]
  - Adverse drug reaction [Unknown]
